FAERS Safety Report 7041853-0 (Version None)
Quarter: 2010Q4

REPORT INFORMATION
  Report Type: 
  Country: None (occurrence: None)
  Receive Date: 20101013
  Receipt Date: 20090722
  Transmission Date: 20110411
  Serious: No
  Sender: FDA-Public Use
  Company Number: US-PFIZER INC-2009235817

PATIENT
  Sex: Female

DRUGS (10)
  1. ERYTHROMYCIN [Suspect]
  2. TETRACYCLINE HCL [Suspect]
  3. VICODIN [Suspect]
  4. TORADOL [Suspect]
  5. BACTRIM [Suspect]
  6. PHENAZOPYRIDINE HCL TAB [Suspect]
  7. HYDROCODONE [Suspect]
  8. KETOROLAC TROMETHAMINE [Suspect]
  9. TRIMETHOPRIM + SULFAMETHOXAZOLE [Suspect]
  10. PHENAZOPYRIDINE HCL TAB [Suspect]

REACTIONS (1)
  - DRUG HYPERSENSITIVITY [None]
